FAERS Safety Report 16231997 (Version 6)
Quarter: 2020Q2

REPORT INFORMATION
  Report Type: Spontaneous
  Country: US (occurrence: US)
  Receive Date: 20190424
  Receipt Date: 20200527
  Transmission Date: 20200713
  Serious: Yes (Disabling, Other)
  Sender: FDA-Public Use
  Company Number: US-SA-2019SA112884

PATIENT
  Age: 47 Year
  Sex: Female

DRUGS (2)
  1. KEVZARA [Suspect]
     Active Substance: SARILUMAB
     Indication: RHEUMATOID ARTHRITIS
     Dosage: 200 MG, QOW
     Route: 058
     Dates: start: 20190125, end: 202005
  2. KEVZARA [Suspect]
     Active Substance: SARILUMAB
     Indication: HAND DEFORMITY
     Dosage: 200 MG, QOW
     Route: 058
     Dates: start: 202005

REACTIONS (14)
  - Pain [Not Recovered/Not Resolved]
  - Product dose omission [Unknown]
  - Rash [Unknown]
  - Joint warmth [Not Recovered/Not Resolved]
  - Unevaluable event [Unknown]
  - Pain [Unknown]
  - Product dose omission [Not Recovered/Not Resolved]
  - Rheumatoid arthritis [Not Recovered/Not Resolved]
  - Fatigue [Unknown]
  - Malaise [Unknown]
  - Arthralgia [Unknown]
  - Loss of personal independence in daily activities [Not Recovered/Not Resolved]
  - Rheumatoid arthritis [Not Recovered/Not Resolved]
  - Product use in unapproved indication [Unknown]

NARRATIVE: CASE EVENT DATE: 20190413
